FAERS Safety Report 6524546-5 (Version None)
Quarter: 2010Q1

REPORT INFORMATION
  Report Type: 
  Country: None (occurrence: None)
  Receive Date: 20100104
  Receipt Date: 20091223
  Transmission Date: 20100710
  Serious: Yes (Hospitalization)
  Sender: FDA-Public Use
  Company Number: US-ROCHE-650338

PATIENT
  Sex: Male
  Weight: 70.2 kg

DRUGS (7)
  1. PEG-INTERFERON ALFA 2A (RO 25-8310) [Suspect]
     Indication: HEPATITIS C
     Dosage: DOSE REPORTED AS 25.7143 MCG (180MCG/0.5ML)
     Route: 058
     Dates: start: 20090330, end: 20090701
  2. RIBAVIRIN [Suspect]
     Indication: HEPATITIS C
     Route: 048
     Dates: start: 20090330, end: 20090622
  3. RIBAVIRIN [Suspect]
     Route: 048
     Dates: start: 20090622, end: 20090703
  4. BLINDED INVESTIGATIONAL DRUG [Suspect]
     Indication: HEPATITIS C
     Dosage: DOSE BLINDED
     Route: 048
     Dates: start: 20090330, end: 20090703
  5. KEPPRA [Concomitant]
     Dates: start: 20070820
  6. ATIVAN [Concomitant]
     Dates: start: 20080804
  7. ZOLOFT [Concomitant]
     Dates: start: 20090212

REACTIONS (2)
  - DISORIENTATION [None]
  - MUSCULAR WEAKNESS [None]
